FAERS Safety Report 16352233 (Version 1)
Quarter: 2019Q2

REPORT INFORMATION
  Report Type: Spontaneous
  Country: DE (occurrence: FR)
  Receive Date: 20190524
  Receipt Date: 20190524
  Transmission Date: 20190711
  Serious: Yes (Hospitalization)
  Sender: FDA-Public Use
  Company Number: DE-PFIZER INC-2003112470

PATIENT
  Age: 44 Year
  Sex: Male

DRUGS (7)
  1. CELEBREX [Suspect]
     Active Substance: CELECOXIB
     Indication: ILL-DEFINED DISORDER
     Route: 048
  2. NISISCO [Suspect]
     Active Substance: HYDROCHLOROTHIAZIDE\VALSARTAN
     Indication: ILL-DEFINED DISORDER
     Route: 048
  3. DAONIL [Suspect]
     Active Substance: GLYBURIDE
     Indication: ILL-DEFINED DISORDER
     Route: 048
  4. FLODIL [FELODIPINE] [Suspect]
     Active Substance: FELODIPINE
     Indication: ILL-DEFINED DISORDER
     Route: 048
  5. TAHOR [Suspect]
     Active Substance: ATORVASTATIN CALCIUM
     Indication: ILL-DEFINED DISORDER
     Route: 048
  6. TRINITRINE [Concomitant]
     Active Substance: NITROGLYCERIN
  7. GLUCOR [Suspect]
     Active Substance: ACARBOSE
     Indication: ILL-DEFINED DISORDER
     Route: 065

REACTIONS (2)
  - Chest pain [Unknown]
  - Angina pectoris [Recovered/Resolved]

NARRATIVE: CASE EVENT DATE: 20030225
